FAERS Safety Report 14974532 (Version 2)
Quarter: 2018Q2

REPORT INFORMATION
  Report Type: Report from Study
  Country: None (occurrence: CA)
  Receive Date: 20180605
  Receipt Date: 20180626
  Transmission Date: 20180711
  Serious: Yes (Death, Hospitalization)
  Sender: FDA-Public Use
  Company Number: CA-ABBVIE-18S-028-2375789-00

PATIENT
  Sex: Male

DRUGS (1)
  1. LUPRON DEPOT [Suspect]
     Active Substance: LEUPROLIDE ACETATE
     Indication: PROSTATE CANCER
     Route: 030
     Dates: start: 19971101

REACTIONS (5)
  - Death [Fatal]
  - Cellulitis [Unknown]
  - Palliative care [Unknown]
  - Mobility decreased [Not Recovered/Not Resolved]
  - Hypotonia [Unknown]
